FAERS Safety Report 5969897-8 (Version None)
Quarter: 2008Q4

REPORT INFORMATION
  Report Type: 
  Country: None (occurrence: None)
  Receive Date: 20081126
  Receipt Date: 20081117
  Transmission Date: 20090506
  Serious: Yes (Other)
  Sender: FDA-Public Use
  Company Number: US-PFIZER INC-2008096802

PATIENT
  Age: 53 Year
  Sex: Female

DRUGS (5)
  1. LYRICA [Suspect]
  2. CYMBALTA [Suspect]
  3. PREVACID [Suspect]
  4. PAXIL [Suspect]
  5. ANALGESICS [Suspect]

REACTIONS (3)
  - HOMICIDAL IDEATION [None]
  - PERSONALITY CHANGE [None]
  - SUICIDE ATTEMPT [None]
